FAERS Safety Report 9387429 (Version 1)
Quarter: 2013Q3

REPORT INFORMATION
  Report Type: Spontaneous
  Country: US (occurrence: None)
  Receive Date: 20130702
  Receipt Date: 20130702
  Transmission Date: 20140515
  Serious: Yes (Other)
  Sender: FDA-Public Use
  Company Number: DSU-2013-03803

PATIENT
  Sex: Male
  Weight: 103.42 kg

DRUGS (1)
  1. BENICAR [Suspect]
     Indication: HYPERTENSION
     Route: 048
     Dates: start: 201305, end: 20130621

REACTIONS (2)
  - Loss of consciousness [None]
  - Blood pressure decreased [None]
